FAERS Safety Report 25564490 (Version 1)
Quarter: 2025Q3

REPORT INFORMATION
  Report Type: Other
  Country: AU (occurrence: AU)
  Receive Date: 20250716
  Receipt Date: 20250716
  Transmission Date: 20251021
  Serious: Yes (Hospitalization)
  Sender: APPCO PHARMA LLC
  Company Number: AU-Appco Pharma LLC-2180600

PATIENT
  Age: 33 Year
  Sex: Female

DRUGS (8)
  1. METRONIDAZOLE [Suspect]
     Active Substance: METRONIDAZOLE
     Indication: Appendicitis perforated
  2. PREDNISOLONE [Concomitant]
     Active Substance: PREDNISOLONE
  3. CIPROFLOXACIN [Suspect]
     Active Substance: CIPROFLOXACIN
  4. CEPHALEXIN [Suspect]
     Active Substance: CEPHALEXIN
  5. GENTAMICIN [Suspect]
     Active Substance: GENTAMICIN
  6. AMOXICILLIN [Suspect]
     Active Substance: AMOXICILLIN
  7. HYDROXYCHLOROQUINE SULFATE [Concomitant]
     Active Substance: HYDROXYCHLOROQUINE SULFATE
  8. AZATHIOPRINE [Concomitant]
     Active Substance: AZATHIOPRINE

REACTIONS (1)
  - Nephropathy [Recovered/Resolved]

NARRATIVE: CASE EVENT DATE: 20170701
